FAERS Safety Report 14597839 (Version 2)
Quarter: 2020Q2

REPORT INFORMATION
  Report Type: Spontaneous
  Country: US (occurrence: US)
  Receive Date: 20180305
  Receipt Date: 20200428
  Transmission Date: 20200713
  Serious: No
  Sender: FDA-Public Use
  Company Number: US-PFIZER INC-2017437586

PATIENT
  Age: 64 Year
  Sex: Female

DRUGS (1)
  1. IBRANCE [Suspect]
     Active Substance: PALBOCICLIB
     Indication: BREAST CANCER FEMALE
     Dosage: 125 MG, CYCLIC (TAKE 1 CAPSULE BY MOUTH DAILY WITH FOOD FOR 21 DAYS ON AND 7 DAYS OFF)
     Route: 048
     Dates: start: 201709

REACTIONS (3)
  - Constipation [Unknown]
  - Product dose omission [Unknown]
  - Dizziness [Unknown]
